FAERS Safety Report 5641011-8 (Version None)
Quarter: 2008Q1

REPORT INFORMATION
  Report Type: 
  Country: None (occurrence: None)
  Receive Date: 20080225
  Receipt Date: 20080211
  Transmission Date: 20080703
  Serious: Yes (Life-Threatening)
  Sender: FDA-Public Use
  Company Number: 8029913

PATIENT
  Age: 37 Year
  Sex: Female
  Weight: 105 kg

DRUGS (9)
  1. LEVETIRACETAM [Suspect]
     Indication: EPILEPSY
     Dosage: 1.75 G 2/D PO
     Route: 048
     Dates: start: 20050101, end: 20080101
  2. LEVETIRACETAM [Suspect]
     Indication: EPILEPSY
  3. LAMOTRIGINE [Suspect]
     Indication: EPILEPSY
     Dosage: 200 MG 2/D PO
     Route: 048
     Dates: start: 20050101, end: 20080101
  4. LAMOTRIGINE [Suspect]
     Indication: EPILEPSY
  5. PHENYTOIN [Suspect]
     Indication: STATUS EPILEPTICUS
     Dosage: IV
     Route: 042
  6. AUGMENTIN '125' [Concomitant]
  7. LORAZEPAM [Concomitant]
  8. SUXAMETHONIUM [Concomitant]
  9. THIOPENTONE [Concomitant]

REACTIONS (4)
  - ACUTE HEPATIC FAILURE [None]
  - BLOOD CREATINE PHOSPHOKINASE INCREASED [None]
  - RHABDOMYOLYSIS [None]
  - STATUS EPILEPTICUS [None]
